FAERS Safety Report 19067335 (Version 1)
Quarter: 2021Q1

REPORT INFORMATION
  Report Type: Report from Study
  Country: US (occurrence: US)
  Receive Date: 20210329
  Receipt Date: 20210329
  Transmission Date: 20210420
  Serious: Yes (Other)
  Sender: FDA-Public Use
  Company Number: NVSC2021US069434

PATIENT

DRUGS (3)
  1. KISQALI [Suspect]
     Active Substance: RIBOCICLIB
     Dosage: 400 MG (MAINTAINED STARTING DOSE (400MG OFTEN }35% OF THE TIME)
     Route: 065
  2. KISQALI [Suspect]
     Active Substance: RIBOCICLIB
     Indication: BREAST CANCER METASTATIC
     Dosage: 600 MG (MAINTAINED STARTING DOSE (600MG OFTEN }35% OF THE TIME)
     Route: 065
  3. KISQALI [Suspect]
     Active Substance: RIBOCICLIB
     Dosage: 200 MG (MAINTAINED STARTING DOSE (200MG OFTEN }35% OF THE TIME)
     Route: 065

REACTIONS (3)
  - Breast cancer metastatic [Unknown]
  - Neutropenia [Unknown]
  - Malignant neoplasm progression [Unknown]
